FAERS Safety Report 4351100-6 (Version None)
Quarter: 2004Q2

REPORT INFORMATION
  Report Type: 
  Country: None (occurrence: None)
  Receive Date: 20040428
  Receipt Date: 20030910
  Transmission Date: 20050107
  Serious: Yes (Death)
  Sender: FDA-Public Use
  Company Number: US-JNJFOC-20030902801

PATIENT
  Age: 44 Year
  Sex: Female
  Weight: 47.6277 kg

DRUGS (6)
  1. ULTRAM [Suspect]
     Indication: DRUG USE FOR UNKNOWN INDICATION
     Dates: start: 20030720, end: 20030726
  2. ZOLOFT [Concomitant]
  3. DARVOCET [Concomitant]
  4. LAMASIL (TERBINAFINE HYDROCHLORIDE) [Concomitant]
  5. VIOXX [Concomitant]
  6. CIPRO [Concomitant]

REACTIONS (2)
  - DEATH [None]
  - DYSPEPSIA [None]
